FAERS Safety Report 14632978 (Version 1)
Quarter: 2018Q1

REPORT INFORMATION
  Report Type: Spontaneous
  Country: DE (occurrence: DE)
  Receive Date: 20180313
  Receipt Date: 20180313
  Transmission Date: 20180509
  Serious: Yes (Hospitalization, Other)
  Sender: FDA-Public Use
  Company Number: DE-009507513-1803DEU002314

PATIENT
  Sex: Male

DRUGS (9)
  1. PEGASYS [Suspect]
     Active Substance: PEGINTERFERON ALFA-2A
     Dosage: 90 MICROGRAM, UNK
     Route: 058
  2. REBETOL [Suspect]
     Active Substance: RIBAVIRIN
     Dosage: UNK
     Route: 065
     Dates: start: 20090221
  3. PEGASYS [Suspect]
     Active Substance: PEGINTERFERON ALFA-2A
     Indication: HEPATITIS C
     Dosage: STEPWISE REDUCTION TO 45 MCG
     Route: 058
     Dates: start: 2010
  4. PEGASYS [Suspect]
     Active Substance: PEGINTERFERON ALFA-2A
     Dosage: 45 MICROGRAM, UNK
     Route: 058
  5. PEGASYS [Suspect]
     Active Substance: PEGINTERFERON ALFA-2A
     Dosage: 2ND ADMINISTRATION
     Route: 058
     Dates: start: 20090228
  6. PEGASYS [Suspect]
     Active Substance: PEGINTERFERON ALFA-2A
     Dosage: 180 MICROGRAM, UNK
     Route: 058
  7. CELLCEPT [Suspect]
     Active Substance: MYCOPHENOLATE MOFETIL\MYCOPHENOLATE MOFETIL HYDROCHLORIDE
     Indication: LIVER TRANSPLANT
     Route: 065
  8. REBETOL [Suspect]
     Active Substance: RIBAVIRIN
     Indication: HEPATITIS C
     Dosage: UNK
     Route: 065
     Dates: start: 201005
  9. PEGASYS [Suspect]
     Active Substance: PEGINTERFERON ALFA-2A
     Dosage: UNK
     Route: 058
     Dates: start: 20090221

REACTIONS (14)
  - Pancytopenia [Unknown]
  - Liver transplant rejection [Unknown]
  - Ascites [Unknown]
  - Hepatitis C [Unknown]
  - Pleural effusion [Unknown]
  - Blood test abnormal [Unknown]
  - Anaemia [Unknown]
  - Bronchial carcinoma [Unknown]
  - Complications of transplanted liver [Unknown]
  - Implant site fibrosis [Unknown]
  - Thrombocytopenia [Unknown]
  - Immunosuppressant drug level decreased [Unknown]
  - Oesophageal haemorrhage [Unknown]
  - Hepatic failure [Unknown]

NARRATIVE: CASE EVENT DATE: 20090313
